FAERS Safety Report 8407353-8 (Version None)
Quarter: 2012Q2

REPORT INFORMATION
  Report Type: 
  Country: None (occurrence: None)
  Receive Date: 20120323
  Receipt Date: 20110223
  Transmission Date: 20120825
  Serious: Yes (Hospitalization)
  Sender: FDA-Public Use
  Company Number: 163-21880-11021101

PATIENT
  Age: 87 Year
  Sex: Female
  Weight: 49.9 kg

DRUGS (15)
  1. REVLIMID [Suspect]
     Indication: WALDENSTROM'S MACROGLOBULINAEMIA
     Dosage: 10:5 MG, 1 IN 1; 1 IN 2  D, PO
     Route: 048
     Dates: start: 20101222
  2. REMERON [Concomitant]
  3. AMBIEN [Concomitant]
  4. DIGOXIN [Concomitant]
  5. METOPROLOL TARTRATE [Concomitant]
  6. ACETAMINOPHEN [Concomitant]
  7. OMEPRAZOLE [Concomitant]
  8. LAXATIVES (LAXATIVES) [Concomitant]
  9. AUGMENTIN '125' [Concomitant]
  10. POTASSIUM CHLORIDE [Concomitant]
  11. DOXYCYCLINE [Concomitant]
  12. VITAMIN B12 [Concomitant]
  13. VICODIN [Concomitant]
  14. REVLIMID [Suspect]
  15. PRADAXA (DABIGATRAN ETEXILATE MESILATE) [Concomitant]

REACTIONS (4)
  - DIARRHOEA [None]
  - CELLULITIS [None]
  - OEDEMA PERIPHERAL [None]
  - ABDOMINAL DISCOMFORT [None]
